FAERS Safety Report 11080922 (Version 1)
Quarter: 2015Q2

REPORT INFORMATION
  Report Type: Spontaneous
  Country: US (occurrence: None)
  Receive Date: 20150430
  Receipt Date: 20150430
  Transmission Date: 20150821
  Serious: Yes (Disabling, Other)
  Sender: FDA-Public Use
  Company Number: None

PATIENT
  Age: 61 Year
  Sex: Female
  Weight: 60.78 kg

DRUGS (4)
  1. AMBIEN [Suspect]
     Active Substance: ZOLPIDEM TARTRATE
     Indication: INSOMNIA
     Dosage: 1 PILL WHEN NEEDED FOR ?AT BEDTIME?TAKEN BY MOUTH
     Route: 048
     Dates: start: 20150417, end: 20150419
  2. NAPROXIN [Concomitant]
     Active Substance: NAPROXEN
  3. ASPIRIN. [Concomitant]
     Active Substance: ASPIRIN
  4. ACYCLOVIR. [Concomitant]
     Active Substance: ACYCLOVIR

REACTIONS (10)
  - Dizziness [None]
  - Dysstasia [None]
  - Hypoaesthesia [None]
  - Impaired work ability [None]
  - Product substitution issue [None]
  - Peripheral swelling [None]
  - Heart rate increased [None]
  - Product quality issue [None]
  - Neuralgia [None]
  - Swelling face [None]

NARRATIVE: CASE EVENT DATE: 20150417
